FAERS Safety Report 4452281-6 (Version None)
Quarter: 2004Q3

REPORT INFORMATION
  Report Type: 
  Country: None (occurrence: None)
  Receive Date: 20040917
  Receipt Date: 20040914
  Transmission Date: 20050211
  Serious: Yes (Life-Threatening, Other)
  Sender: FDA-Public Use
  Company Number: US-BRISTOL-MYERS SQUIBB COMPANY-12701801

PATIENT
  Age: 40 Year
  Sex: Male
  Weight: 126 kg

DRUGS (19)
  1. SUSTIVA [Suspect]
     Indication: HIV INFECTION
     Dosage: ONCE DAILY
     Route: 048
     Dates: start: 20010625
  2. COVERA-HS [Concomitant]
     Indication: HYPERTENSION
     Dosage: ONCE DAILY
     Route: 048
     Dates: start: 20000523
  3. ZESTRIL [Concomitant]
     Indication: HYPERTENSION
     Dosage: ONCE DAILY
     Route: 048
     Dates: start: 20000523
  4. DIOVAN HCT [Concomitant]
     Indication: HYPERTENSION
     Dosage: ONCE DAILY; DOSAGE FORM: 80/12.5 MG
     Route: 048
     Dates: start: 20010301
  5. CELEXA [Concomitant]
     Indication: ANXIETY DISORDER
     Dosage: ONCE DAILY
     Route: 048
     Dates: start: 20010301
  6. ZANAFLEX [Concomitant]
     Indication: TRIGEMINAL NEURALGIA
     Route: 048
     Dates: start: 19990523
  7. VITAMIN [Concomitant]
     Dosage: ONCE DAILY
     Route: 048
     Dates: start: 20010910
  8. ZYRTEC [Concomitant]
     Indication: SINUS DISORDER
     Dosage: DOSAGE FORM: TABLET
     Route: 048
     Dates: start: 20020902
  9. IBUPROFEN [Concomitant]
     Indication: HEADACHE
     Dosage: DOSAGE FORM: TABLET
     Route: 048
     Dates: start: 20020902
  10. TUMS [Concomitant]
     Indication: NAUSEA
     Dosage: DOSAGE FORM: TABLET
     Route: 048
     Dates: start: 20030301
  11. ABREVA [Concomitant]
     Indication: BLISTER
     Dates: start: 20030301
  12. LYSINE [Concomitant]
     Indication: BLISTER
     Dosage: ONCE DAILY
     Route: 040
     Dates: start: 20030301
  13. LAMISIL [Concomitant]
     Dosage: ONCE DAILY
     Route: 048
     Dates: start: 20030520
  14. BEE POLLEN [Concomitant]
     Dosage: DOSAGE FORM: TABLET; ONCE DAILY
     Dates: start: 20030718
  15. CALCIUM [Concomitant]
     Dosage: DOSAGE FORM: TABLET; ONCE DAILY
     Dates: start: 20030718
  16. EXTRA STRENGTH TYLENOL [Concomitant]
     Indication: NASOPHARYNGITIS
     Dosage: DOSAGE FORM: TABLET
     Dates: start: 20031203
  17. PRAVACHOL [Concomitant]
     Dosage: ONCE DAILY
     Dates: start: 20030715
  18. LIPITOR [Concomitant]
     Indication: BLOOD CHOLESTEROL INCREASED
     Dosage: ONCE DAILY
     Dates: start: 20040430
  19. METROGEL [Concomitant]
     Indication: ROSACEA
     Route: 061
     Dates: start: 20040430

REACTIONS (2)
  - BLOOD CHOLESTEROL INCREASED [None]
  - LOW DENSITY LIPOPROTEIN INCREASED [None]
